FAERS Safety Report 6878651-4 (Version None)
Quarter: 2010Q3

REPORT INFORMATION
  Report Type: 
  Country: None (occurrence: None)
  Receive Date: 20100728
  Receipt Date: 20100726
  Transmission Date: 20110219
  Serious: Yes (Congenital Anomaly)
  Sender: FDA-Public Use
  Company Number: A0872401A

PATIENT

DRUGS (9)
  1. EPIVIR [Suspect]
     Indication: HIV INFECTION
     Dates: start: 20020102, end: 20040225
  2. ZIAGEN [Suspect]
     Indication: HIV INFECTION
     Dates: start: 20020102, end: 20040225
  3. VIRACEPT [Suspect]
     Indication: HIV INFECTION
     Dates: start: 20020102, end: 20040225
  4. BECLOMETHASONE DIPROPIONATE [Concomitant]
  5. CEFTRIAXONE [Concomitant]
  6. FERROUS SULFATE [Concomitant]
  7. FOLIC ACID [Concomitant]
  8. PREDNISONE [Concomitant]
  9. ALBUTEROL [Concomitant]

REACTIONS (2)
  - CONGENITAL INGUINAL HERNIA [None]
  - DRUG EXPOSURE DURING PREGNANCY [None]
